FAERS Safety Report 10149697 (Version 1)
Quarter: 2014Q2

REPORT INFORMATION
  Report Type: Spontaneous
  Country: JP (occurrence: JP)
  Receive Date: 20140502
  Receipt Date: 20140502
  Transmission Date: 20141212
  Serious: Yes (Congenital Anomaly)
  Sender: FDA-Public Use
  Company Number: JP-009507513-1404JPN014635

PATIENT
  Sex: Male

DRUGS (1)
  1. PROPECIA TABLETS 0.2MG [Suspect]
     Dosage: DAILY DOSE UNKNOWN
     Route: 064

REACTIONS (3)
  - Cryptorchism [Unknown]
  - Foetal exposure during pregnancy [Unknown]
  - Exposure via father [Unknown]
